FAERS Safety Report 6844889-5 (Version None)
Quarter: 2010Q3

REPORT INFORMATION
  Report Type: 
  Country: None (occurrence: None)
  Receive Date: 20100715
  Receipt Date: 20100708
  Transmission Date: 20110219
  Serious: Yes (Death)
  Sender: FDA-Public Use
  Company Number: ES-CEPHALON-2010001219

PATIENT
  Age: 82 Year
  Sex: Male

DRUGS (6)
  1. TREANDA [Suspect]
     Route: 042
  2. TREANDA [Suspect]
     Route: 042
  3. TREANDA [Suspect]
     Route: 042
  4. RITUXIMAB [Suspect]
     Route: 042
  5. RITUXIMAB [Suspect]
     Route: 042
  6. ALLOPURINOL [Concomitant]

REACTIONS (1)
  - EPIDERMOLYSIS [None]
